FAERS Safety Report 14079058 (Version 1)
Quarter: 2017Q4

REPORT INFORMATION
  Report Type: Spontaneous
  Country: ZA (occurrence: ZA)
  Receive Date: 20171012
  Receipt Date: 20171012
  Transmission Date: 20180321
  Serious: Yes (Death, Other)
  Sender: FDA-Public Use
  Company Number: ZA-CIPLA (EU) LIMITED-2016ZA07940

PATIENT

DRUGS (6)
  1. TAMBOCOR [Suspect]
     Active Substance: FLECAINIDE ACETATE
     Indication: CARDIOVERSION
     Dosage: 100 MG, DAILY
     Route: 065
  2. CARDICOR [Suspect]
     Active Substance: BISOPROLOL
     Dosage: 2.5 MG, QD
     Route: 065
  3. ATOLIP [Suspect]
     Active Substance: ATORVASTATIN CALCIUM
     Dosage: 20 MG, NOCTE
     Route: 065
  4. ESCITALOPRAM [Suspect]
     Active Substance: ESCITALOPRAM OXALATE
     Dosage: 10 MG, QD
     Route: 065
  5. XALATAN [Suspect]
     Active Substance: LATANOPROST
     Dosage: UNK
     Route: 065
  6. XARELTO [Suspect]
     Active Substance: RIVAROXABAN
     Indication: ANTICOAGULANT THERAPY
     Dosage: 20 MG, DAILY WITH MEAL
     Route: 065

REACTIONS (2)
  - Death [Fatal]
  - Cerebral haemorrhage [Unknown]
